FAERS Safety Report 6306288-4 (Version None)
Quarter: 2009Q3

REPORT INFORMATION
  Report Type: 
  Country: None (occurrence: None)
  Receive Date: 20090812
  Receipt Date: 20090804
  Transmission Date: 20100115
  Serious: Yes (Disabling, Other)
  Sender: FDA-Public Use
  Company Number: PHHY2009JP25326

PATIENT
  Sex: Male
  Weight: 69 kg

DRUGS (7)
  1. ZOMETA [Suspect]
     Indication: BONE LESION
     Dosage: 4 MG, QMO
     Route: 042
     Dates: start: 20070919, end: 20081020
  2. TAXOTERE [Suspect]
     Indication: PROSTATE CANCER
     Dosage: UNK
     Dates: start: 20081222, end: 20090428
  3. LH-RH INJ. [Concomitant]
  4. LEUPLIN [Concomitant]
     Indication: PROSTATE CANCER
     Dosage: UNK
     Route: 058
     Dates: start: 20021129, end: 20081217
  5. ESTRACYT [Concomitant]
     Indication: PROSTATE CANCER
     Dosage: 4 DF, UNK
     Route: 048
     Dates: start: 20080604, end: 20090204
  6. OXYCONTIN [Concomitant]
     Dosage: 30 MG, UNK
     Route: 048
     Dates: start: 20080702
  7. HYPEN [Concomitant]
     Dosage: 4 DF, UNK
     Route: 048
     Dates: start: 20070123, end: 20081119

REACTIONS (3)
  - OSTEOMYELITIS [None]
  - PARALYSIS [None]
  - TOOTHACHE [None]
